FAERS Safety Report 5028413-8 (Version None)
Quarter: 2006Q2

REPORT INFORMATION
  Report Type: 
  Country: None (occurrence: None)
  Receive Date: 20060617
  Receipt Date: 20060524
  Transmission Date: 20061013
  Serious: Yes (Hospitalization, Disabling)
  Sender: FDA-Public Use
  Company Number: JP-AVENTIS-200611611JP

PATIENT
  Age: 60 Year
  Sex: Male
  Weight: 59 kg

DRUGS (11)
  1. AMARYL [Suspect]
     Indication: DIABETES MELLITUS
     Route: 048
     Dates: start: 20030909, end: 20031105
  2. ACARBOSE [Concomitant]
     Indication: DIABETES MELLITUS
     Route: 048
  3. ASPIRIN [Concomitant]
     Indication: ANGINA PECTORIS
     Route: 048
     Dates: start: 20030904
  4. ACECOL [Concomitant]
     Indication: HYPERTENSION
     Route: 048
     Dates: start: 20030904
  5. ZANTAC [Concomitant]
     Indication: GASTRITIS
     Route: 048
     Dates: start: 20030904
  6. PANALDINE [Concomitant]
     Indication: ANGINA PECTORIS
     Route: 048
     Dates: start: 20030904
  7. PLETAL [Concomitant]
     Indication: ANGINA PECTORIS
     Route: 048
     Dates: start: 20030904
  8. ARTIST [Concomitant]
     Indication: HYPERTENSION
     Route: 048
     Dates: start: 20030902
  9. DAONIL [Concomitant]
     Indication: DIABETES MELLITUS
     Dates: start: 20020901, end: 20030909
  10. ACTOS [Concomitant]
     Indication: DIABETES MELLITUS
     Dates: start: 20020901, end: 20030909
  11. MEVALOTIN [Concomitant]
     Indication: HYPERLIPIDAEMIA
     Dates: start: 20020901, end: 20030909

REACTIONS (13)
  - ANGINA PECTORIS [None]
  - ANOREXIA [None]
  - ARTERIOSCLEROSIS [None]
  - BLOOD PRESSURE INCREASED [None]
  - CEREBRAL DISORDER [None]
  - DEPRESSED LEVEL OF CONSCIOUSNESS [None]
  - DIARRHOEA [None]
  - HYPOGLYCAEMIC COMA [None]
  - HYPOMETABOLISM [None]
  - LACUNAR INFARCTION [None]
  - MICROCYTIC ANAEMIA [None]
  - PNEUMONIA [None]
  - POST PROCEDURAL COMPLICATION [None]
